FAERS Safety Report 8096976-4 (Version None)
Quarter: 2012Q1

REPORT INFORMATION
  Report Type: 
  Country: None (occurrence: None)
  Receive Date: 20120129
  Receipt Date: 20111203
  Transmission Date: 20120608
  Serious: No
  Sender: FDA-Public Use
  Company Number: US-ABBOTT-11P-163-0880776-00

PATIENT
  Age: 53 Year
  Sex: Female

DRUGS (3)
  1. DIOVAN [Concomitant]
     Indication: HYPERTENSION
  2. COREG [Concomitant]
     Indication: HYPERTENSION
  3. HUMIRA [Suspect]
     Indication: PSORIASIS
     Dates: start: 20110804, end: 20111203

REACTIONS (1)
  - DRUG INEFFECTIVE [None]
